FAERS Safety Report 10152924 (Version 1)
Quarter: 2014Q2

REPORT INFORMATION
  Report Type: Spontaneous
  Country: FR (occurrence: FR)
  Receive Date: 20140505
  Receipt Date: 20140505
  Transmission Date: 20141212
  Serious: Yes (Hospitalization)
  Sender: FDA-Public Use
  Company Number: FR-GLAXOSMITHKLINE-B0988041A

PATIENT
  Age: 82 Year
  Sex: Female

DRUGS (10)
  1. SERETIDE [Suspect]
     Indication: PRODUCT USED FOR UNKNOWN INDICATION
     Route: 055
  2. KARDEGIC [Suspect]
     Indication: PRODUCT USED FOR UNKNOWN INDICATION
     Dosage: 75MG PER DAY
     Route: 048
  3. PLAVIX [Suspect]
     Indication: PRODUCT USED FOR UNKNOWN INDICATION
     Dosage: 75MG PER DAY
     Route: 048
  4. OROCAL D3 [Concomitant]
     Route: 048
  5. FEBUXOSTAT [Concomitant]
     Dosage: 80MG PER DAY
     Route: 048
  6. BISOPROLOL [Concomitant]
     Dosage: 10MG PER DAY
     Route: 048
  7. VASTEN [Concomitant]
     Dosage: 10MG PER DAY
     Route: 048
  8. DOLIPRANE [Concomitant]
     Route: 048
  9. TARDYFERON [Concomitant]
     Route: 048
  10. COVERAM [Concomitant]
     Dosage: 5MG PER DAY
     Route: 048

REACTIONS (3)
  - Skin necrosis [Recovered/Resolved]
  - Traumatic haematoma [Recovered/Resolved]
  - Impaired healing [Recovered/Resolved with Sequelae]
